FAERS Safety Report 10446766 (Version 1)
Quarter: 2014Q3

REPORT INFORMATION
  Report Type: Spontaneous
  Country: GB (occurrence: GB)
  Receive Date: 20140911
  Receipt Date: 20140911
  Transmission Date: 20150326
  Serious: Yes (Other)
  Sender: FDA-Public Use
  Company Number: GB-JNJFOC-20140904114

PATIENT
  Age: 34 Year
  Sex: Male

DRUGS (3)
  1. LAMICTAL [Concomitant]
     Active Substance: LAMOTRIGINE
     Dosage: 75
     Route: 065
     Dates: start: 20110511, end: 20140826
  2. DIAZEPAM. [Concomitant]
     Active Substance: DIAZEPAM
     Dosage: 2, 1 TABLET AS DIRECTED
     Route: 065
     Dates: start: 20130208, end: 20140826
  3. ITRACONAZOLE. [Suspect]
     Active Substance: ITRACONAZOLE
     Indication: ONYCHOMYCOSIS
     Dosage: 200 MG TWICE DAILY FOR 1/52, REPEAT AFTER 3/52, REPEAT AGAIN AFTER 3/52.
     Route: 065
     Dates: start: 20130703, end: 20130831

REACTIONS (3)
  - Condition aggravated [Not Recovered/Not Resolved]
  - Bipolar I disorder [Not Recovered/Not Resolved]
  - Depression [Not Recovered/Not Resolved]

NARRATIVE: CASE EVENT DATE: 20130708
